FAERS Safety Report 5718762-X (Version None)
Quarter: 2008Q2

REPORT INFORMATION
  Report Type: 
  Country: None (occurrence: None)
  Receive Date: 20080425
  Receipt Date: 20080418
  Transmission Date: 20081010
  Serious: Yes (Hospitalization)
  Sender: FDA-Public Use
  Company Number: PHHY2008JP06086

PATIENT
  Age: 79 Year
  Sex: Male

DRUGS (4)
  1. PLAVIX [Suspect]
     Dosage: 50 MG DAILY
     Route: 048
     Dates: end: 20080418
  2. DIOVAN [Suspect]
     Indication: HYPERTENSION
     Dosage: 40 MG TWICE DAILY
     Route: 048
     Dates: end: 20080418
  3. MERISLON [Concomitant]
  4. URIEF [Concomitant]

REACTIONS (2)
  - DYSPNOEA [None]
  - INTERSTITIAL LUNG DISEASE [None]
